FAERS Safety Report 5947830-2 (Version None)
Quarter: 2008Q4

REPORT INFORMATION
  Report Type: 
  Country: None (occurrence: None)
  Receive Date: 20081107
  Receipt Date: 20081022
  Transmission Date: 20090506
  Serious: Yes (Death)
  Sender: FDA-Public Use
  Company Number: 20480

PATIENT
  Age: 64 Year
  Sex: Female

DRUGS (2)
  1. CARBOPLATIN [Suspect]
     Indication: NON-SMALL CELL LUNG CANCER
  2. NAVELBINE [Suspect]
     Indication: NON-SMALL CELL LUNG CANCER
     Dosage: 60 MG/M2 PER_CYCLE PO
     Route: 048

REACTIONS (6)
  - APPARENT DEATH [None]
  - CHILLS [None]
  - DISEASE PROGRESSION [None]
  - MALAISE [None]
  - NEUTROPENIC SEPSIS [None]
  - PYREXIA [None]
